FAERS Safety Report 4666106-7 (Version None)
Quarter: 2005Q2

REPORT INFORMATION
  Report Type: 
  Country: None (occurrence: None)
  Receive Date: 20050519
  Receipt Date: 20050513
  Transmission Date: 20051028
  Serious: Yes (Life-Threatening)
  Sender: FDA-Public Use
  Company Number: JP-GLAXOSMITHKLINE-B0381189A

PATIENT
  Age: 1 Year
  Sex: Female
  Weight: 10 kg

DRUGS (4)
  1. PAXIL [Suspect]
     Indication: ACCIDENTAL EXPOSURE
     Route: 048
     Dates: start: 20050512, end: 20050512
  2. ROHYPNOL [Concomitant]
     Dosage: 2MG PER DAY
     Route: 048
  3. CONTOMIN [Concomitant]
     Dosage: 12.5MG PER DAY
     Route: 048
  4. PROMETHAZINE HCL [Concomitant]
     Dosage: 25MG PER DAY
     Route: 048

REACTIONS (2)
  - ACCIDENTAL EXPOSURE [None]
  - PNEUMONIA [None]
